FAERS Safety Report 21188564 (Version 1)
Quarter: 2022Q3

REPORT INFORMATION
  Report Type: Spontaneous
  Country: US (occurrence: US)
  Receive Date: 20220809
  Receipt Date: 20220809
  Transmission Date: 20221026
  Serious: No
  Sender: FDA-Public Use
  Company Number: US-IGSA-BIG0018772

PATIENT
  Age: 74 Year
  Sex: Female

DRUGS (3)
  1. GAMUNEX-C [Suspect]
     Active Substance: HUMAN IMMUNOGLOBULIN G
     Indication: Hypogammaglobulinaemia
     Dosage: 20 GRAM, Q.4WK.
     Route: 042
     Dates: start: 20220303, end: 20220303
  2. GAMUNEX-C [Suspect]
     Active Substance: HUMAN IMMUNOGLOBULIN G
     Dosage: 20 GRAM, Q.4WK.
     Route: 042
     Dates: start: 20220331, end: 20220331
  3. GAMUNEX-C [Suspect]
     Active Substance: HUMAN IMMUNOGLOBULIN G
     Dosage: 20 GRAM, Q.4WK.
     Route: 042
     Dates: start: 20220429, end: 20220429

REACTIONS (3)
  - Glomerular filtration rate decreased [Unknown]
  - Blood urea increased [Unknown]
  - Chills [Unknown]

NARRATIVE: CASE EVENT DATE: 20220303
